FAERS Safety Report 14532843 (Version 3)
Quarter: 2018Q2

REPORT INFORMATION
  Report Type: Spontaneous
  Country: US (occurrence: US)
  Receive Date: 20180214
  Receipt Date: 20180528
  Transmission Date: 20180711
  Serious: No
  Sender: FDA-Public Use
  Company Number: US-CELGENEUS-USA-20180204083

PATIENT
  Age: 60 Year
  Sex: Male

DRUGS (1)
  1. OTEZLA [Suspect]
     Active Substance: APREMILAST
     Indication: PSORIASIS
     Dosage: 60 MILLIGRAM
     Route: 048
     Dates: start: 2017

REACTIONS (6)
  - Nausea [Unknown]
  - Therapeutic response decreased [Unknown]
  - Diarrhoea [Unknown]
  - Headache [Unknown]
  - Eye burns [Unknown]
  - Flatulence [Unknown]

NARRATIVE: CASE EVENT DATE: 20170517
